FAERS Safety Report 8807189 (Version 2)
Quarter: 2012Q4

REPORT INFORMATION
  Report Type: 
  Country: IT (occurrence: IT)
  Receive Date: 20120925
  Receipt Date: 20121011
  Transmission Date: 20130627
  Serious: Yes (Hospitalization)
  Sender: FDA-Public Use
  Company Number: IT-BAYER-2012-099851

PATIENT
  Age: 83 Year
  Sex: Male

DRUGS (6)
  1. CARDIOASPIRIN [Suspect]
     Dosage: UNK
     Route: 048
     Dates: start: 20120101
  2. SINTROM [Suspect]
     Dosage: UNK
     Route: 048
     Dates: start: 20060415
  3. CARDICOR [Concomitant]
     Route: 048
  4. LESCOL [Concomitant]
     Route: 048
  5. CONVERTEN [Concomitant]
     Route: 048
  6. ADALAT CRONO [Concomitant]
     Route: 048

REACTIONS (8)
  - Pallor [Recovering/Resolving]
  - Asthenia [Recovering/Resolving]
  - International normalised ratio increased [Recovering/Resolving]
  - Gastrointestinal haemorrhage [Recovering/Resolving]
  - Anaemia [Recovering/Resolving]
  - Faeces discoloured [Recovering/Resolving]
  - Hiatus hernia [Recovering/Resolving]
  - Oesophagitis [Recovering/Resolving]
